FAERS Safety Report 5869962-X (Version None)
Quarter: 2008Q3

REPORT INFORMATION
  Report Type: 
  Country: None (occurrence: None)
  Receive Date: 20080904
  Receipt Date: 20080904
  Transmission Date: 20090109
  Serious: Yes (Hospitalization)
  Sender: FDA-Public Use
  Company Number: PHEH1996US01081

PATIENT
  Sex: Female
  Weight: 83.6 kg

DRUGS (5)
  1. NEORAL [Suspect]
     Route: 048
     Dates: start: 19950613
  2. PROVERA [Concomitant]
  3. PROCARDIA [Concomitant]
  4. PREDNISONE TAB [Concomitant]
  5. AZATHIOPRINE [Concomitant]

REACTIONS (2)
  - BODY TEMPERATURE INCREASED [None]
  - URINARY TRACT INFECTION [None]
